FAERS Safety Report 10239334 (Version 1)
Quarter: 2014Q2

REPORT INFORMATION
  Report Type: Spontaneous
  Country: CN (occurrence: CN)
  Receive Date: 20140616
  Receipt Date: 20140616
  Transmission Date: 20141212
  Serious: Yes (Other)
  Sender: FDA-Public Use
  Company Number: CN-PFIZER INC-2014161782

PATIENT
  Age: 54 Year
  Sex: Female
  Weight: 57 kg

DRUGS (2)
  1. PHARMORUBICIN [Suspect]
     Indication: SARCOMA UTERUS
     Dosage: 70 MG, 1X/DAY
     Route: 041
     Dates: start: 20131114, end: 20131115
  2. IFOSFAMIDE [Suspect]
     Indication: SARCOMA UTERUS
     Dosage: 2 G, 1X/DAY
     Route: 041
     Dates: start: 20131114, end: 20131116

REACTIONS (1)
  - Monocyte count decreased [Recovering/Resolving]
